FAERS Safety Report 8811019 (Version 2)
Quarter: 2013Q1

REPORT INFORMATION
  Report Type: Spontaneous
  Country: US (occurrence: US)
  Receive Date: 20120924
  Receipt Date: 20130130
  Transmission Date: 20140127
  Serious: Yes (Hospitalization, Other)
  Sender: FDA-Public Use
  Company Number: US-BANPHARM-20120138

PATIENT
  Age: 75 Year
  Sex: Female
  Weight: 66.22 kg

DRUGS (9)
  1. ALEVE [Suspect]
     Indication: BACK PAIN
     Dosage: 2 DF, PRN,
     Route: 048
     Dates: start: 2008, end: 201204
  2. PLAVIX [Suspect]
     Dosage: UNK,
     Route: 048
     Dates: start: 2011
  3. LIPITOR [Concomitant]
     Route: 048
  4. METOPROLOL [Concomitant]
  5. FAMOTIDINE [Concomitant]
  6. CALCIUM [Concomitant]
  7. FISH OIL [Concomitant]
     Route: 048
  8. CRANBERRY PILL [Concomitant]
     Route: 048
  9. CENTRUM SILVER [Concomitant]
     Route: 048

REACTIONS (4)
  - Gastric ulcer haemorrhage [Recovered/Resolved]
  - Drug interaction [Recovered/Resolved]
  - Hypotension [Recovered/Resolved]
  - Rectal haemorrhage [Recovered/Resolved]
